FAERS Safety Report 6522705-9 (Version None)
Quarter: 2009Q4

REPORT INFORMATION
  Report Type: 
  Country: None (occurrence: None)
  Receive Date: 20091230
  Receipt Date: 20091224
  Transmission Date: 20100525
  Serious: Yes (Death, Life-Threatening, Hospitalization, Other)
  Sender: FDA-Public Use
  Company Number: BE-CELGENEUS-013-C5013-09120129

PATIENT
  Sex: Female
  Weight: 77 kg

DRUGS (28)
  1. CC-5013 [Suspect]
     Indication: CHRONIC LYMPHOCYTIC LEUKAEMIA
     Route: 048
     Dates: start: 20091116, end: 20091127
  2. SINTROM [Suspect]
     Dosage: 1-2MG PRN
     Route: 048
     Dates: start: 19980305, end: 20091126
  3. LIPITOR [Concomitant]
     Indication: HYPERCHOLESTEROLAEMIA
     Route: 048
     Dates: start: 20020101, end: 20091208
  4. ALLOPURINOL [Concomitant]
     Indication: RENAL FAILURE
     Route: 048
     Dates: start: 20040426, end: 20091112
  5. ALLOPURINOL [Concomitant]
     Route: 048
     Dates: start: 20091113, end: 20091126
  6. ALLOPURINOL [Concomitant]
     Route: 048
     Dates: start: 20091207, end: 20091208
  7. CITALOPRAM HYDROBROMIDE [Concomitant]
     Indication: DEPRESSION
     Route: 048
     Dates: start: 20080128, end: 20091208
  8. LORAZEPAM [Concomitant]
     Indication: INSOMNIA
     Route: 048
     Dates: start: 20080128, end: 20091208
  9. DURAGESIC-100 [Concomitant]
     Indication: PAIN
     Route: 062
     Dates: start: 20091128, end: 20091209
  10. NULYTELY [Concomitant]
     Indication: CONSTIPATION
     Route: 048
     Dates: start: 20090918, end: 20091209
  11. LISINOPRIL [Concomitant]
     Indication: HYPERTENSION
     Route: 048
     Dates: start: 20090901, end: 20091208
  12. BISOPROLOL [Concomitant]
     Indication: HYPERTENSION
     Route: 048
     Dates: start: 20090901, end: 20091127
  13. BUMEX [Concomitant]
     Indication: RENAL FAILURE
     Route: 048
     Dates: start: 20090706, end: 20091208
  14. CALCIUM [Concomitant]
     Indication: DRUG USE FOR UNKNOWN INDICATION
     Route: 048
     Dates: start: 20090706, end: 20091208
  15. TRAMADOL HCL [Concomitant]
     Indication: PAIN
     Route: 048
     Dates: start: 20091101, end: 20091128
  16. RANITIDINE [Concomitant]
     Route: 048
     Dates: start: 20091127, end: 20091202
  17. RANITIDINE [Concomitant]
     Route: 051
     Dates: start: 20091203, end: 20091203
  18. FUROSEMIDE [Concomitant]
     Route: 051
     Dates: start: 20091128, end: 20091204
  19. VITAMIN K TAB [Concomitant]
     Indication: COAGULATION FACTOR DEFICIENCY
     Route: 051
     Dates: start: 20091128, end: 20091128
  20. TAMIFLU [Concomitant]
     Indication: INFLUENZA
     Route: 048
     Dates: start: 20091128, end: 20091129
  21. ROCEPHIN [Concomitant]
     Route: 051
     Dates: start: 20091127, end: 20091203
  22. CLARITHROMYCIN [Concomitant]
     Route: 051
     Dates: start: 20091130, end: 20091207
  23. PREDNISOLONE [Concomitant]
     Indication: RESPIRATORY DISTRESS
     Route: 051
     Dates: start: 20091202, end: 20091204
  24. PREDNISOLONE [Concomitant]
     Route: 051
     Dates: start: 20091205, end: 20091208
  25. MORPHINE [Concomitant]
     Indication: PAIN
     Route: 051
     Dates: start: 20091203, end: 20091205
  26. OMEPRAZOLE [Concomitant]
     Route: 048
     Dates: start: 20091204, end: 20091208
  27. NEXIUM [Concomitant]
     Route: 051
     Dates: start: 20091207, end: 20091207
  28. VALIUM [Concomitant]
     Indication: PALLIATIVE CARE
     Route: 051
     Dates: start: 20091209, end: 20091209

REACTIONS (6)
  - ANAEMIA [None]
  - INTERNATIONAL NORMALISED RATIO INCREASED [None]
  - MULTI-ORGAN FAILURE [None]
  - PULMONARY ALVEOLAR HAEMORRHAGE [None]
  - THROMBOCYTOPENIA [None]
  - TUMOUR FLARE [None]
